FAERS Safety Report 14669631 (Version 5)
Quarter: 2018Q2

REPORT INFORMATION
  Report Type: Report from Study
  Country: CA (occurrence: CA)
  Receive Date: 20180322
  Receipt Date: 20180622
  Transmission Date: 20180711
  Serious: Yes (Other)
  Sender: FDA-Public Use
  Company Number: CA-GLAXOSMITHKLINE-CA2018GSK047485

PATIENT
  Sex: Female

DRUGS (3)
  1. PREDNISONE. [Suspect]
     Active Substance: PREDNISONE
     Indication: PRODUCT USED FOR UNKNOWN INDICATION
     Dosage: UNK
     Dates: end: 201712
  2. MEPOLIZUMAB [Suspect]
     Active Substance: MEPOLIZUMAB
     Dosage: 100 MG, Z
     Route: 042
     Dates: start: 20180223
  3. MEPOLIZUMAB [Suspect]
     Active Substance: MEPOLIZUMAB
     Indication: ASTHMA
     Dosage: 100 MG, Z
     Route: 042
     Dates: start: 20180223

REACTIONS (16)
  - Nasopharyngitis [Unknown]
  - Head discomfort [Recovered/Resolved]
  - Nasal congestion [Not Recovered/Not Resolved]
  - Malaise [Unknown]
  - Immune system disorder [Unknown]
  - Vomiting [Unknown]
  - Nausea [Not Recovered/Not Resolved]
  - Headache [Not Recovered/Not Resolved]
  - Cough [Unknown]
  - Dyspepsia [Unknown]
  - Nervousness [Unknown]
  - Influenza [Unknown]
  - Pneumonia [Recovering/Resolving]
  - Fatigue [Not Recovered/Not Resolved]
  - Adrenal insufficiency [Unknown]
  - Productive cough [Unknown]
